FAERS Safety Report 15470637 (Version 2)
Quarter: 2018Q4

REPORT INFORMATION
  Report Type: Spontaneous
  Country: US (occurrence: US)
  Receive Date: 20181005
  Receipt Date: 20181009
  Transmission Date: 20190205
  Serious: No
  Sender: FDA-Public Use
  Company Number: US-PFIZER INC-2018399570

PATIENT
  Age: 91 Year
  Sex: Female

DRUGS (1)
  1. TIKOSYN [Suspect]
     Active Substance: DOFETILIDE
     Dosage: 6 DF, DAILY (THREE IN THE MORNING, THREE IN THE EVENING)

REACTIONS (1)
  - Product use issue [Unknown]
